FAERS Safety Report 9951928 (Version 2)
Quarter: 2014Q1

REPORT INFORMATION
  Report Type: Report from Study
  Country: US (occurrence: US)
  Receive Date: 20140304
  Receipt Date: 20140304
  Transmission Date: 20141002
  Serious: Yes (Other)
  Sender: FDA-Public Use
  Company Number: US-ABBVIE-13P-163-1045846-00

PATIENT
  Age: 33 Year
  Sex: Female
  Weight: 97.61 kg

DRUGS (13)
  1. HUMIRA PEN [Suspect]
     Indication: CROHN^S DISEASE
     Dates: start: 201209
  2. PREDNISONE [Concomitant]
     Indication: CROHN^S DISEASE
  3. TOPAMAX [Concomitant]
     Indication: MIGRAINE
  4. KLOR-CON [Concomitant]
     Indication: HYPOKALAEMIA
  5. LISINOPRIL [Concomitant]
     Indication: HYPERTENSION
  6. EFFEXOR [Concomitant]
     Indication: DEPRESSION
  7. ATIVAN [Concomitant]
     Indication: ANXIETY
  8. TRAZODONE [Concomitant]
     Indication: INSOMNIA
  9. LOVENOX [Concomitant]
     Indication: DEEP VEIN THROMBOSIS
  10. MULTIVITAMINS [Concomitant]
     Indication: VITAMIN SUPPLEMENTATION
  11. NORVASC [Concomitant]
     Indication: PRODUCT USED FOR UNKNOWN INDICATION
  12. LOPRESSOR [Concomitant]
     Indication: PRODUCT USED FOR UNKNOWN INDICATION
  13. PANTOPRAZOLE [Concomitant]
     Indication: PRODUCT USED FOR UNKNOWN INDICATION

REACTIONS (19)
  - Abdominal pain [Not Recovered/Not Resolved]
  - Diarrhoea [Not Recovered/Not Resolved]
  - Nausea [Recovered/Resolved]
  - Drug ineffective [Not Recovered/Not Resolved]
  - Pyrexia [Recovered/Resolved]
  - Vomiting [Recovered/Resolved]
  - Diarrhoea [Recovered/Resolved]
  - Vomiting [Recovered/Resolved]
  - Abdominal pain [Recovered/Resolved]
  - Rectal haemorrhage [Not Recovered/Not Resolved]
  - Abdominal pain [Not Recovered/Not Resolved]
  - Abdominal pain upper [Not Recovered/Not Resolved]
  - Dyspnoea [Not Recovered/Not Resolved]
  - Mobility decreased [Not Recovered/Not Resolved]
  - Faeces hard [Recovered/Resolved]
  - Diarrhoea [Not Recovered/Not Resolved]
  - Insomnia [Not Recovered/Not Resolved]
  - Colitis [Unknown]
  - Mental disorder [Unknown]
